FAERS Safety Report 9609832 (Version 1)
Quarter: 2013Q4

REPORT INFORMATION
  Report Type: Report from Study
  Country: TW (occurrence: TW)
  Receive Date: 20131009
  Receipt Date: 20131009
  Transmission Date: 20140711
  Serious: No
  Sender: FDA-Public Use
  Company Number: PHHY2013TW071372

PATIENT
  Age: 50 Year
  Sex: Male

DRUGS (64)
  1. AMN107 [Suspect]
     Dosage: 800 MG, UNK
     Dates: start: 20110425
  2. INDAPAMIDE [Concomitant]
     Indication: HYPERTENSION
     Dosage: UNK
     Dates: start: 20110215, end: 20110524
  3. AMLODIPINE BESYLATE [Concomitant]
     Indication: HYPERTENSION
     Dosage: UNK
     Dates: start: 20110215, end: 20110524
  4. AMLODIPINE BESYLATE [Concomitant]
     Dosage: UNK
     Dates: start: 20110802, end: 20121224
  5. CLONAZEPAM [Concomitant]
     Indication: MUSCLE SPASMS
     Dosage: UNK
     Dates: start: 20110215, end: 20110524
  6. CLONAZEPAM [Concomitant]
     Indication: INSOMNIA
     Dosage: UNK
     Dates: start: 20110802, end: 20120119
  7. CLONAZEPAM [Concomitant]
     Dosage: UNK
     Dates: start: 20120214, end: 20120820
  8. CLONAZEPAM [Concomitant]
     Dosage: UNK
     Dates: start: 20121016, end: 20121203
  9. CLONAZEPAM [Concomitant]
     Dosage: UNK
  10. FUSIDIC ACID [Concomitant]
     Indication: PRURITUS
     Dosage: UNK
     Dates: start: 20110524, end: 20110621
  11. LEVOCETIRIZIN [Concomitant]
     Indication: PRURITUS
     Dosage: UNK
     Dates: start: 20110621, end: 20110801
  12. CLOBETASONE BUTYRATE [Concomitant]
     Indication: PRURITUS
     Dosage: UNK
     Dates: start: 20110503, end: 20110523
  13. CLOBETASONE BUTYRATE [Concomitant]
     Dosage: UNK
     Dates: start: 20110802, end: 20110830
  14. CLOBETASONE BUTYRATE [Concomitant]
     Dosage: UNK
     Dates: start: 20120921, end: 20121121
  15. CLOBETASONE BUTYRATE [Concomitant]
     Dosage: UNK
     Dates: start: 20121225, end: 20130117
  16. SMECTITE [Concomitant]
     Indication: DIARRHOEA
     Dosage: UNK
     Dates: start: 20110621, end: 20110801
  17. SMECTITE [Concomitant]
     Indication: GASTROENTERITIS
     Dosage: UNK
     Dates: start: 20130215, end: 20130218
  18. DIMETHICONE [Concomitant]
     Indication: FLATULENCE
     Dosage: UNK
     Dates: start: 20110705, end: 20110801
  19. DIMETHICONE [Concomitant]
     Dosage: UNK
     Dates: start: 20111122, end: 20120119
  20. DIMETHICONE [Concomitant]
     Dosage: UNK
     Dates: start: 20120410, end: 20120720
  21. DIMETHICONE [Concomitant]
     Dosage: UNK
     Dates: start: 20120821, end: 20121112
  22. DIMETHICONE [Concomitant]
     Dosage: UNK
     Dates: start: 20130118
  23. CHOLESTYRAMINE RESIN [Concomitant]
     Indication: DIARRHOEA
     Dosage: UNK
     Dates: start: 20110705, end: 20110707
  24. CHOLESTYRAMINE RESIN [Concomitant]
     Dosage: UNK
     Dates: start: 20110802, end: 20110809
  25. CHOLESTYRAMINE RESIN [Concomitant]
     Dosage: UNK
     Dates: start: 20110830, end: 20110927
  26. DEXTROMETHORPHAN [Concomitant]
     Indication: NASOPHARYNGITIS
     Dosage: UNK
     Dates: start: 20111122, end: 20111202
  27. DEXTROMETHORPHAN [Concomitant]
     Dosage: UNK
     Dates: start: 20120120, end: 20120130
  28. AMBROXOL HCL [Concomitant]
     Indication: NASOPHARYNGITIS
     Dosage: UNK
     Dates: start: 20111122, end: 20111202
  29. AMBROXOL HCL [Concomitant]
     Indication: UPPER RESPIRATORY TRACT INFECTION
     Dosage: UNK
     Dates: start: 20120120, end: 20120130
  30. AMBROXOL HCL [Concomitant]
     Dosage: UNK
     Dates: start: 20121016, end: 20121025
  31. AMBROXOL HCL [Concomitant]
     Dosage: UNK
     Dates: start: 20130319, end: 20130408
  32. AMBROXOL HCL [Concomitant]
     Dosage: UNK
     Dates: start: 20130412
  33. FEXOFENADINE HCL [Concomitant]
     Indication: NASOPHARYNGITIS
     Dosage: UNK
     Dates: start: 20120120, end: 20120130
  34. FEXOFENADINE HCL [Concomitant]
     Indication: UPPER RESPIRATORY TRACT INFECTION
     Dosage: UNK
     Dates: start: 20111122, end: 20111202
  35. FEXOFENADINE HCL [Concomitant]
     Dosage: UNK
     Dates: start: 20121016, end: 20121025
  36. FEXOFENADINE HCL [Concomitant]
     Dosage: UNK
     Dates: start: 20130319, end: 20130408
  37. FEXOFENADINE HCL [Concomitant]
     Dosage: UNK
     Dates: start: 20130412
  38. ACETAMINOPHEN [Concomitant]
     Indication: GASTROENTERITIS
     Dosage: UNK
     Dates: start: 20130215, end: 20130218
  39. ACETAMINOPHEN [Concomitant]
     Indication: UPPER RESPIRATORY TRACT INFECTION
     Dosage: UNK
     Dates: start: 20130319, end: 20130326
  40. ACETAMINOPHEN [Concomitant]
     Dosage: UNK
     Dates: start: 20130412, end: 20130419
  41. ANTAZOLINE HYDROCHLORIDE [Concomitant]
     Indication: CONJUNCTIVITIS
     Dosage: UNK
     Dates: start: 20120120, end: 20120409
  42. BETAMETHASONE VALERATE [Concomitant]
     Indication: PRURITUS
     Dosage: UNK
     Dates: start: 20120921, end: 20121015
  43. BETAMETHASONE VALERATE [Concomitant]
     Indication: TINEA PEDIS
     Dosage: UNK
     Dates: start: 20121225, end: 20130117
  44. CALCIUM POLYSTYRENE SULFONATE [Concomitant]
     Indication: HYPERKALAEMIA
     Dosage: UNK
     Dates: start: 20120918, end: 20120921
  45. CIPROFLOXACIN HYDROCHLORIDE MONOHYDRATE [Concomitant]
     Indication: GASTROENTERITIS
     Dosage: UNK
     Dates: start: 20130215, end: 20130218
  46. CIPROFLOXACIN LACTATE [Concomitant]
     Indication: GASTROENTERITIS
     Dosage: UNK
     Dates: start: 20130215, end: 20130215
  47. DEXTROMETHORPHAN HBR [Concomitant]
     Indication: UPPER RESPIRATORY TRACT INFECTION
     Dosage: UNK
     Dates: start: 20121016, end: 20121025
  48. DEXTROMETHORPHAN HBR [Concomitant]
     Indication: NASOPHARYNGITIS
     Dosage: UNK
     Dates: start: 20120319, end: 20130408
  49. DEXTROMETHORPHAN HBR [Concomitant]
     Dosage: UNK
     Dates: start: 20130412
  50. FAMOTIDINE [Concomitant]
     Indication: GASTROOESOPHAGEAL REFLUX DISEASE
     Dosage: UNK
     Dates: start: 20130118
  51. FLUNITRAZEPAM [Concomitant]
     Indication: INSOMNIA
     Dosage: UNK
     Dates: start: 20120120, end: 20120213
  52. FLUNITRAZEPAM [Concomitant]
     Dosage: UNK
     Dates: start: 20130118
  53. HYDROCORTISONE ACETATE [Concomitant]
     Indication: PRURITUS
     Dosage: UNK
     Dates: start: 20120508, end: 20120821
  54. INFLUENZA VACCINE INACTIVATED [Concomitant]
     Indication: INFLUENZA
     Dosage: UNK
     Dates: start: 20121113, end: 20121113
  55. LACTULOSE [Concomitant]
     Indication: CONSTIPATION
     Dosage: UNK
     Dates: start: 20120410, end: 20120414
  56. LOPERAMIDE HCL [Concomitant]
     Indication: DIARRHOEA
     Dosage: UNK
     Dates: start: 20121113, end: 20121123
  57. MAGNESIUM OXIDE [Concomitant]
     Indication: CONSTIPATION
     Dosage: UNK
     Dates: start: 20120410, end: 20120723
  58. PRAVASTATIN SODIUM [Concomitant]
     Indication: HYPERCHOLESTEROLAEMIA
     Dosage: UNK
     Dates: start: 20120724, end: 20120918
  59. PRAVASTATIN SODIUM [Concomitant]
     Dosage: UNK
     Dates: start: 20121016, end: 20121203
  60. PRAVASTATIN SODIUM [Concomitant]
     Dosage: UNK
     Dates: start: 20121225
  61. PROCHLORPERAZINE MALEATE [Concomitant]
     Indication: GASTROENTERITIS
     Dosage: UNK
     Dates: start: 20130215, end: 20130218
  62. PROCHLORPERAZINE//PROCHLORPERAZINE MESILATE [Concomitant]
     Indication: GASTROENTERITIS
     Dosage: UNK
     Dates: start: 20130215, end: 20130215
  63. SERTACONAZOLE NITRATE [Concomitant]
     Indication: PRURITUS
     Dosage: UNK
     Dates: start: 20121225, end: 20130117
  64. SULFAMETHOXAZOLE [Concomitant]
     Indication: CONJUNCTIVITIS
     Dosage: UNK
     Dates: start: 20120120, end: 20120213

REACTIONS (1)
  - Diarrhoea [Unknown]
